FAERS Safety Report 14484894 (Version 1)
Quarter: 2018Q1

REPORT INFORMATION
  Report Type: Spontaneous
  Country: CH (occurrence: CH)
  Receive Date: 20180205
  Receipt Date: 20180205
  Transmission Date: 20180509
  Serious: Yes (Hospitalization)
  Sender: FDA-Public Use
  Company Number: CH-NOVOPROD-582978

PATIENT
  Age: 67 Year
  Sex: Female

DRUGS (3)
  1. BELOC ZOK [Concomitant]
     Active Substance: METOPROLOL SUCCINATE
     Dosage: UNK
     Route: 065
  2. KLIOGEST [Suspect]
     Active Substance: ESTROGENS
     Indication: HORMONE REPLACEMENT THERAPY
     Dosage: UNK
     Route: 048
     Dates: end: 201710
  3. PRAVASTATIN MEPHA [Concomitant]
     Dosage: UNK
     Route: 065

REACTIONS (4)
  - Generalised tonic-clonic seizure [Recovered/Resolved]
  - Subarachnoid haemorrhage [Recovering/Resolving]
  - Cerebral thrombosis [Recovering/Resolving]
  - Subdural haemorrhage [Recovering/Resolving]

NARRATIVE: CASE EVENT DATE: 201710
